FAERS Safety Report 8670197 (Version 3)
Quarter: 2013Q4

REPORT INFORMATION
  Report Type: Spontaneous
  Country: US (occurrence: US)
  Receive Date: 20120718
  Receipt Date: 20131101
  Transmission Date: 20140711
  Serious: No
  Sender: FDA-Public Use
  Company Number: US-009507513-1207USA004364

PATIENT
  Age: 4 Year
  Sex: Female
  Weight: 15.8 kg

DRUGS (2)
  1. PEGINTRON [Suspect]
     Indication: CHRONIC HEPATITIS C
     Dosage: 40 MICROGRAM, QW
     Route: 058
     Dates: start: 20120314, end: 20120611
  2. REBETOL [Suspect]
     Indication: HEPATITIS C
     Dosage: 240 MG, UNK
     Route: 048
     Dates: start: 20120314, end: 20120611

REACTIONS (5)
  - Abnormal behaviour [Recovered/Resolved]
  - Anger [Recovered/Resolved]
  - Aggression [Recovered/Resolved]
  - Trichotillomania [Recovered/Resolved]
  - Self injurious behaviour [Recovered/Resolved]
